FAERS Safety Report 6408935-5 (Version None)
Quarter: 2009Q4

REPORT INFORMATION
  Report Type: 
  Country: None (occurrence: None)
  Receive Date: 20091021
  Receipt Date: 20091016
  Transmission Date: 20100525
  Serious: Yes (Hospitalization)
  Sender: FDA-Public Use
  Company Number: US-BRISTOL-MYERS SQUIBB COMPANY-14821037

PATIENT
  Age: 69 Year
  Sex: Male
  Weight: 95 kg

DRUGS (3)
  1. CARBOPLATIN [Suspect]
     Indication: NON-SMALL CELL LUNG CANCER
     Dosage: WEEKLY DOSE GIVEN ON 12-OCT-2009 WAS 205MG.
     Dates: start: 20090928, end: 20091012
  2. TAXOL [Suspect]
     Indication: NON-SMALL CELL LUNG CANCER
     Dosage: WEEKLY DOSE GIVEN ON 12-OCT-2009 WAS 100MG.
     Dates: start: 20090928, end: 20091012
  3. RADIATION THERAPY [Suspect]
     Indication: NON-SMALL CELL LUNG CANCER
     Dosage: 1 DF = 2600GY NO OF FRACTIONS:30 NO OF ELAPSED DAYS:17
     Dates: start: 20090928, end: 20091014

REACTIONS (5)
  - CHEST PAIN [None]
  - DIZZINESS [None]
  - DYSPNOEA [None]
  - PERIPHERAL MOTOR NEUROPATHY [None]
  - TINNITUS [None]
